FAERS Safety Report 6302785-6 (Version None)
Quarter: 2009Q3

REPORT INFORMATION
  Report Type: 
  Country: None (occurrence: None)
  Receive Date: 20090810
  Receipt Date: 20090709
  Transmission Date: 20100115
  Serious: No
  Sender: FDA-Public Use
  Company Number: US-BAYER-200912305BCC

PATIENT
  Age: 71 Year
  Sex: Female
  Weight: 89 kg

DRUGS (6)
  1. ALEVE [Suspect]
     Indication: CARTILAGE INJURY
     Route: 048
     Dates: start: 20090707
  2. SYNTHROID [Concomitant]
     Route: 065
  3. NEXIUM [Concomitant]
     Route: 065
  4. NORVASC [Concomitant]
     Route: 065
  5. TOPROL-XL [Concomitant]
     Route: 065
  6. LIPITOR [Concomitant]
     Route: 065

REACTIONS (2)
  - ABDOMINAL PAIN UPPER [None]
  - DIARRHOEA [None]
